FAERS Safety Report 6107547-0 (Version None)
Quarter: 2009Q1

REPORT INFORMATION
  Report Type: 
  Country: None (occurrence: None)
  Receive Date: 20090305
  Receipt Date: 20090223
  Transmission Date: 20090719
  Serious: Yes (Other)
  Sender: FDA-Public Use
  Company Number: CHNY2009JP01083

PATIENT
  Sex: Male

DRUGS (1)
  1. NICOTINE [Suspect]
     Indication: SMOKING CESSATION THERAPY
     Dosage: 14 MG,QD,TRANSDERMAL
     Route: 062
     Dates: start: 20081001, end: 20081001

REACTIONS (2)
  - ANGINA PECTORIS [None]
  - DYSPHONIA [None]
